FAERS Safety Report 5204482-7 (Version None)
Quarter: 2007Q1

REPORT INFORMATION
  Report Type: 
  Country: None (occurrence: None)
  Receive Date: 20070110
  Receipt Date: 20060411
  Transmission Date: 20070707
  Serious: Yes (Other)
  Sender: FDA-Public Use
  Company Number: US-BRISTOL-MYERS SQUIBB COMPANY-13342985

PATIENT
  Age: 56 Year
  Sex: Female

DRUGS (6)
  1. ABILIFY [Suspect]
     Indication: SCHIZOPHRENIA
     Dosage: DOSE WAS INCREASED TO 45 MG/D ON AN UNKNOWN DATE.
     Route: 048
     Dates: start: 20051201
  2. ZYPREXA [Concomitant]
  3. CELEXA [Concomitant]
  4. KLONOPIN [Concomitant]
  5. ADVAIR DISKUS 100/50 [Concomitant]
  6. CARDIZEM [Concomitant]

REACTIONS (1)
  - CONVULSION [None]
